FAERS Safety Report 13719942 (Version 1)
Quarter: 2017Q3

REPORT INFORMATION
  Report Type: Report from Study
  Country: US (occurrence: BR)
  Receive Date: 20170705
  Receipt Date: 20170705
  Transmission Date: 20171127
  Serious: Yes (Other)
  Sender: FDA-Public Use
  Company Number: US-SUNOVION-2017SUN002279

PATIENT
  Sex: Male
  Weight: 65 kg

DRUGS (1)
  1. INDACATEROL AND GLYCOPYRROLATE [Suspect]
     Active Substance: GLYCOPYRROLATE\INDACATEROL MALEATE
     Indication: EMPHYSEMA
     Dosage: 1 DF, QD
     Route: 055

REACTIONS (13)
  - Urinary retention [Unknown]
  - Oral discomfort [Unknown]
  - Lip pain [Unknown]
  - Drug hypersensitivity [Unknown]
  - Hypersensitivity [Unknown]
  - Wheezing [Unknown]
  - Blood pressure increased [Recovering/Resolving]
  - Oral pain [Unknown]
  - Anxiety [Unknown]
  - Throat irritation [Unknown]
  - Chest pain [Unknown]
  - Diabetes mellitus [Unknown]
  - Heart rate increased [Unknown]
